FAERS Safety Report 14352480 (Version 8)
Quarter: 2019Q4

REPORT INFORMATION
  Report Type: Spontaneous
  Country: US (occurrence: US)
  Receive Date: 20180104
  Receipt Date: 20191227
  Transmission Date: 20200122
  Serious: Yes (Hospitalization)
  Sender: FDA-Public Use
  Company Number: US-ACTELION-A-US2018-165195

PATIENT
  Sex: Female

DRUGS (13)
  1. FISH OIL [Concomitant]
     Active Substance: FISH OIL
  2. MULTIVITAMIN [Concomitant]
     Active Substance: VITAMINS
  3. LEVOTHYROXINE. [Concomitant]
     Active Substance: LEVOTHYROXINE
     Dosage: UNK, QAM
  4. ESZOPICLONE. [Concomitant]
     Active Substance: ESZOPICLONE
  5. LORATADINE. [Concomitant]
     Active Substance: LORATADINE
  6. SIMVASTATIN. [Concomitant]
     Active Substance: SIMVASTATIN
     Dosage: UNK, QD
  7. RAMIPRIL. [Concomitant]
     Active Substance: RAMIPRIL
  8. ASPIRIN. [Concomitant]
     Active Substance: ASPIRIN
  9. OPSUMIT [Suspect]
     Active Substance: MACITENTAN
     Indication: PULMONARY ARTERIAL HYPERTENSION
     Dosage: 10 MG, QD
     Route: 048
     Dates: start: 20140822
  10. CARVEDILOL. [Concomitant]
     Active Substance: CARVEDILOL
     Dosage: 1/2 TABLET IN THE AM, 1/2 TABLET IN THE PM
  11. VERAPAMIL [Concomitant]
     Active Substance: VERAPAMIL HYDROCHLORIDE
  12. CALTRATE WITH VITAMIN D [Concomitant]
     Active Substance: CALCIUM CARBONATE\CHOLECALCIFEROL
  13. LUNESTA [Concomitant]
     Active Substance: ESZOPICLONE

REACTIONS (14)
  - Dyspepsia [Not Recovered/Not Resolved]
  - Incontinence [Unknown]
  - Malaise [Unknown]
  - Oropharyngeal pain [Unknown]
  - Product dose omission [Unknown]
  - Cough [Unknown]
  - Hypotension [Not Recovered/Not Resolved]
  - Chest discomfort [Not Recovered/Not Resolved]
  - Upper respiratory tract infection [Unknown]
  - Dyspnoea [Unknown]
  - Flatulence [Not Recovered/Not Resolved]
  - Respiratory tract infection [Unknown]
  - Irritable bowel syndrome [Not Recovered/Not Resolved]
  - Influenza [Unknown]

NARRATIVE: CASE EVENT DATE: 2014
